FAERS Safety Report 8452218 (Version 3)
Quarter: 2012Q4

REPORT INFORMATION
  Report Type: 
  Country: BR (occurrence: BR)
  Receive Date: 20120311
  Receipt Date: 20121031
  Transmission Date: 20130627
  Serious: Yes (Other)
  Sender: FDA-Public Use
  Company Number: BR-ASTRAZENECA-2012SE14704

PATIENT
  Age: 74 Year
  Sex: Female

DRUGS (5)
  1. ATACAND [Suspect]
     Route: 048
  2. ATACAND HCT [Suspect]
     Indication: HYPERTENSION
     Dosage: 16/12.5 MG
     Route: 048
     Dates: start: 2006
  3. SELOZOK [Suspect]
     Indication: HYPERTENSION
     Route: 048
     Dates: start: 2006
  4. SELOZOK [Suspect]
     Indication: HYPERTENSION
     Route: 048
  5. UNKNOWN [Concomitant]
     Indication: HYPOTHYROIDISM

REACTIONS (8)
  - Gastrointestinal carcinoma [Recovered/Resolved]
  - Thrombosis [Not Recovered/Not Resolved]
  - Pulmonary oedema [Not Recovered/Not Resolved]
  - Spinal pain [Recovered/Resolved]
  - Pericardial effusion [Recovered/Resolved]
  - Blood pressure increased [Recovered/Resolved]
  - Arthralgia [Not Recovered/Not Resolved]
  - Drug ineffective [Unknown]
